FAERS Safety Report 4533543-0 (Version None)
Quarter: 2004Q4

REPORT INFORMATION
  Report Type: 
  Country: None (occurrence: None)
  Receive Date: 20041221
  Receipt Date: 20040421
  Transmission Date: 20050328
  Serious: Yes (Life-Threatening, Hospitalization)
  Sender: FDA-Public Use
  Company Number: JP-MERCK-0404USA02088

PATIENT
  Age: 85 Year
  Sex: Female

DRUGS (6)
  1. FOSAMAX [Suspect]
     Indication: OSTEOPOROSIS
     Route: 048
     Dates: start: 20040128, end: 20040327
  2. WARFARIN SODIUM [Suspect]
     Indication: ATRIAL FIBRILLATION
     Route: 048
     Dates: start: 20030106
  3. BAYMYCARD [Concomitant]
     Indication: HYPERTENSION
     Route: 048
     Dates: start: 20030106
  4. BENSERAZIDE HYDROCHLORIDE AND LEVODOPA [Concomitant]
     Indication: PARKINSON'S DISEASE
     Route: 048
     Dates: start: 20030106
  5. BUFFERIN [Suspect]
     Route: 048
     Dates: start: 20030106
  6. LANSOPRAZOLE [Concomitant]
     Indication: REFLUX OESOPHAGITIS
     Route: 048
     Dates: start: 20030106

REACTIONS (6)
  - BACK PAIN [None]
  - MEDICATION ERROR [None]
  - OESOPHAGEAL HAEMORRHAGE [None]
  - OSTEOPOROSIS [None]
  - SHOCK HAEMORRHAGIC [None]
  - VOMITING [None]
